FAERS Safety Report 4305111-7 (Version None)
Quarter: 2004Q1

REPORT INFORMATION
  Report Type: 
  Country: None (occurrence: None)
  Receive Date: 20040223
  Receipt Date: 20031202
  Transmission Date: 20041129
  Serious: No
  Sender: FDA-Public Use
  Company Number: SU-2003-001846

PATIENT
  Age: 52 Year
  Sex: Male
  Weight: 106.5953 kg

DRUGS (4)
  1. BENICAR [Suspect]
     Indication: HYPERTENSION
     Dosage: 20 MG QD PO
     Dates: start: 20030811, end: 20030824
  2. BENICAR [Suspect]
     Indication: HYPERTENSION
     Dosage: 20 MG QD PO
     Dates: start: 20030801, end: 20030912
  3. NASACORT [Concomitant]
     Dates: end: 20030801
  4. AVELOX [Concomitant]
     Dates: end: 20030801

REACTIONS (1)
  - NIGHT SWEATS [None]
